FAERS Safety Report 17536364 (Version 1)
Quarter: 2020Q1

REPORT INFORMATION
  Report Type: Spontaneous
  Country: FR (occurrence: FR)
  Receive Date: 20200313
  Receipt Date: 20200313
  Transmission Date: 20200409
  Serious: Yes (Hospitalization)
  Sender: FDA-Public Use
  Company Number: FR-TEVA-2020-FR-1199865

PATIENT
  Age: 26 Year
  Sex: Male
  Weight: 85 kg

DRUGS (3)
  1. QUETIAPINE. [Interacting]
     Active Substance: QUETIAPINE
     Indication: SUICIDE ATTEMPT
     Dosage: 2400 MG, TOTAL
     Route: 048
     Dates: start: 20200123
  2. DIAZEPAM. [Suspect]
     Active Substance: DIAZEPAM
     Indication: SUICIDE ATTEMPT
     Dosage: 9 DOSAGE FORMS, TOTAL
     Route: 048
     Dates: start: 20200123
  3. LAMALINE (CAFFEINE\PARACETAMOL\ATROPA BELLADONNA EXTRACT\PAPAVER SOMNIFERUM TINCTURE) [Interacting]
     Active Substance: ACETAMINOPHEN\BELLADONNA LEAF\CAFFEINE\OPIUM
     Indication: SUICIDE ATTEMPT
     Dosage: 20 DOSAGE FORMS, TOTAL
     Route: 048
     Dates: start: 20200123

REACTIONS (4)
  - Suicide attempt [Recovered/Resolved]
  - Hypotension [Recovered/Resolved]
  - Tachycardia [Recovered/Resolved]
  - Drug interaction [Unknown]

NARRATIVE: CASE EVENT DATE: 20200123
